FAERS Safety Report 7745575-X (Version None)
Quarter: 2011Q3

REPORT INFORMATION
  Report Type: 
  Country: None (occurrence: None)
  Receive Date: 20110913
  Receipt Date: 20110830
  Transmission Date: 20111222
  Serious: Yes (Hospitalization, Other)
  Sender: FDA-Public Use
  Company Number: US-ELI_LILLY_AND_COMPANY-US201008001843

PATIENT
  Sex: Female

DRUGS (8)
  1. LEVOTHYROXINE SODIUM [Concomitant]
  2. STOOL SOFTENER [Concomitant]
  3. HYDROCODONE [Concomitant]
  4. FORTEO [Suspect]
     Dosage: 20 UG, QD
  5. MULTI-VITAMIN [Concomitant]
  6. CALCIUM W/VITAMIN D                /00188401/ [Concomitant]
  7. FORTEO [Suspect]
     Indication: OSTEOPOROSIS
     Dosage: 20 UG, QD
     Dates: start: 20090901
  8. INDOMETHACIN [Concomitant]

REACTIONS (4)
  - INJECTION SITE ERYTHEMA [None]
  - ANKLE FRACTURE [None]
  - FALL [None]
  - JOINT INJURY [None]
